FAERS Safety Report 10346276 (Version 3)
Quarter: 2015Q1

REPORT INFORMATION
  Report Type: Report from Study
  Country: JP (occurrence: JP)
  Receive Date: 20140728
  Receipt Date: 20150121
  Transmission Date: 20150720
  Serious: Yes (Other)
  Sender: FDA-Public Use
  Company Number: PHHY2014JP091047

PATIENT
  Age: 28 Year
  Sex: Male

DRUGS (90)
  1. CLOZARIL [Suspect]
     Active Substance: CLOZAPINE
     Dosage: 25 MG, QD
     Route: 048
     Dates: start: 20130314, end: 20130316
  2. BENZALIN [Suspect]
     Active Substance: NITRAZEPAM
     Indication: SCHIZOPHRENIA, DISORGANISED TYPE
     Dosage: 5 MG, QD
     Route: 048
     Dates: start: 20130322, end: 20130322
  3. BENZALIN [Suspect]
     Active Substance: NITRAZEPAM
     Dosage: 5 MG, QD
     Route: 048
     Dates: start: 20130324, end: 20130325
  4. BENZALIN [Suspect]
     Active Substance: NITRAZEPAM
     Dosage: 5 MG, QD
     Route: 048
     Dates: start: 20130530, end: 20130530
  5. BENZALIN [Suspect]
     Active Substance: NITRAZEPAM
     Dosage: 5 MG, QD
     Route: 048
     Dates: start: 20131224, end: 20131224
  6. SENNOSIDE [Concomitant]
     Active Substance: SENNOSIDES
     Dosage: 12 MG, UNK
     Route: 048
  7. SENNOSIDE [Concomitant]
     Active Substance: SENNOSIDES
     Dosage: 24 MG, UNK
     Route: 048
  8. SENNOSIDE [Concomitant]
     Active Substance: SENNOSIDES
     Dosage: 24 MG, UNK
     Route: 048
  9. CLOZARIL [Suspect]
     Active Substance: CLOZAPINE
     Dosage: 300 MG, QD
     Route: 048
     Dates: start: 20130515, end: 20130530
  10. BENZALIN [Suspect]
     Active Substance: NITRAZEPAM
     Dosage: 5 MG, QD
     Route: 048
     Dates: start: 20130327, end: 20130329
  11. BENZALIN [Suspect]
     Active Substance: NITRAZEPAM
     Dosage: 5 MG, QD
     Route: 048
     Dates: start: 20130501, end: 20130501
  12. BENZALIN [Suspect]
     Active Substance: NITRAZEPAM
     Dosage: 5 MG, QD
     Route: 048
     Dates: start: 20130503, end: 20130503
  13. BENZALIN [Suspect]
     Active Substance: NITRAZEPAM
     Dosage: 5 MG, QD
     Route: 048
     Dates: start: 20130506, end: 20130507
  14. BENZALIN [Suspect]
     Active Substance: NITRAZEPAM
     Dosage: 5 MG, QD
     Route: 048
     Dates: start: 20130602, end: 20130602
  15. BENZALIN [Suspect]
     Active Substance: NITRAZEPAM
     Dosage: 5 MG, QD
     Route: 048
     Dates: start: 20130615, end: 20130622
  16. BENZALIN [Suspect]
     Active Substance: NITRAZEPAM
     Dosage: 5 MG, QD
     Route: 048
     Dates: start: 20131011, end: 20131011
  17. BENZALIN [Suspect]
     Active Substance: NITRAZEPAM
     Dosage: 5 MG, QD
     Route: 048
     Dates: start: 20131027, end: 20131027
  18. BENZALIN [Suspect]
     Active Substance: NITRAZEPAM
     Dosage: 5 MG, QD
     Route: 048
     Dates: start: 20131124, end: 20131124
  19. BENZALIN [Suspect]
     Active Substance: NITRAZEPAM
     Dosage: 5 MG, QD
     Route: 048
     Dates: start: 20140106, end: 20140107
  20. LIMAS [Concomitant]
     Active Substance: LITHIUM CARBONATE
     Indication: PROPHYLAXIS
     Dosage: 400 MG, UNK
     Route: 048
     Dates: start: 20130605, end: 20130903
  21. WYPAX [Concomitant]
     Active Substance: LORAZEPAM
     Dosage: 1 MG, UNK
     Route: 048
  22. CLOZARIL [Suspect]
     Active Substance: CLOZAPINE
     Dosage: 150 MG, QD
     Route: 048
     Dates: start: 20130327, end: 20130329
  23. CLOZARIL [Suspect]
     Active Substance: CLOZAPINE
     Dosage: 550 MG, QD
     Route: 048
     Dates: start: 20130703, end: 20130709
  24. CLOZARIL [Suspect]
     Active Substance: CLOZAPINE
     Dosage: 600 MG, QD
     Route: 048
     Dates: start: 20130710, end: 20131019
  25. CLOZARIL [Suspect]
     Active Substance: CLOZAPINE
     Dosage: 500 MG, QD
     Route: 048
     Dates: start: 20140212, end: 20140225
  26. BENZALIN [Suspect]
     Active Substance: NITRAZEPAM
     Dosage: 5 MG,QD
     Route: 048
     Dates: start: 20130413, end: 20130413
  27. BENZALIN [Suspect]
     Active Substance: NITRAZEPAM
     Dosage: 5 MG, QD
     Route: 048
     Dates: start: 20130424, end: 20130424
  28. BENZALIN [Suspect]
     Active Substance: NITRAZEPAM
     Dosage: 5 MG, QD
     Route: 048
     Dates: start: 20130428, end: 20130428
  29. BENZALIN [Suspect]
     Active Substance: NITRAZEPAM
     Dosage: 5 MG, QD
     Route: 048
     Dates: start: 20130515, end: 20130516
  30. BENZALIN [Suspect]
     Active Substance: NITRAZEPAM
     Dosage: 10 MG, QD
     Route: 048
     Dates: start: 20130623, end: 20130623
  31. BENZALIN [Suspect]
     Active Substance: NITRAZEPAM
     Dosage: 5 MG, QD
     Route: 048
     Dates: start: 20130627, end: 20130703
  32. BENZALIN [Suspect]
     Active Substance: NITRAZEPAM
     Dosage: 5 MG, QD
     Route: 048
     Dates: start: 20130707, end: 20130727
  33. BENZALIN [Suspect]
     Active Substance: NITRAZEPAM
     Dosage: 10 MG, QD
     Route: 048
     Dates: start: 20130728, end: 20130728
  34. BENZALIN [Suspect]
     Active Substance: NITRAZEPAM
     Dosage: 5 MG, QD
     Route: 048
     Dates: start: 20131018, end: 20131018
  35. BENZALIN [Suspect]
     Active Substance: NITRAZEPAM
     Dosage: 5 MG, QD
     Route: 048
     Dates: start: 20140308, end: 20140308
  36. SENNOSIDE [Concomitant]
     Active Substance: SENNOSIDES
     Dosage: 24 MG, UNK
     Route: 048
  37. CLOZARIL [Suspect]
     Active Substance: CLOZAPINE
     Indication: SCHIZOPHRENIA
     Dosage: 12.5 MG, QD
     Route: 048
     Dates: start: 20130313, end: 20130313
  38. CLOZARIL [Suspect]
     Active Substance: CLOZAPINE
     Dosage: 175 MG, QD
     Route: 048
     Dates: start: 20130330, end: 20130401
  39. CLOZARIL [Suspect]
     Active Substance: CLOZAPINE
     Dosage: 600 MG, QD
     Route: 048
     Dates: start: 20140305
  40. BENZALIN [Suspect]
     Active Substance: NITRAZEPAM
     Dosage: 5 MG, QD
     Route: 048
     Dates: start: 20130521, end: 20130521
  41. BENZALIN [Suspect]
     Active Substance: NITRAZEPAM
     Dosage: 10 MG, QD
     Route: 048
     Dates: start: 20130526, end: 20130526
  42. BENZALIN [Suspect]
     Active Substance: NITRAZEPAM
     Dosage: 5 MG,QD
     Route: 048
     Dates: start: 20130624, end: 20130625
  43. BENZALIN [Suspect]
     Active Substance: NITRAZEPAM
     Dosage: 10 MG, QD
     Route: 048
     Dates: start: 20130626, end: 20130626
  44. BENZALIN [Suspect]
     Active Substance: NITRAZEPAM
     Dosage: 10 MG, QD
     Route: 048
     Dates: start: 20130704, end: 20130704
  45. BENZALIN [Suspect]
     Active Substance: NITRAZEPAM
     Dosage: 10 MG, QD
     Route: 048
     Dates: start: 20130706, end: 20130706
  46. SENNOSIDE [Concomitant]
     Active Substance: SENNOSIDES
     Dosage: 24 MG, UNK
     Route: 048
     Dates: end: 20130718
  47. CLOZARIL [Suspect]
     Active Substance: CLOZAPINE
     Dosage: 50 MG, QD
     Route: 048
     Dates: start: 20130317, end: 20130319
  48. CLOZARIL [Suspect]
     Active Substance: CLOZAPINE
     Dosage: 75 MG, QD
     Route: 048
     Dates: start: 20130320, end: 20130321
  49. CLOZARIL [Suspect]
     Active Substance: CLOZAPINE
     Dosage: 125 MG, QD
     Route: 048
     Dates: start: 20130324, end: 20130326
  50. CLOZARIL [Suspect]
     Active Substance: CLOZAPINE
     Dosage: 200 MG, QD
     Route: 048
     Dates: start: 20130402, end: 20130507
  51. CLOZARIL [Suspect]
     Active Substance: CLOZAPINE
     Dosage: 250 MG, QD
     Route: 048
     Dates: start: 20130508, end: 20130514
  52. BENZALIN [Suspect]
     Active Substance: NITRAZEPAM
     Dosage: 5 MG, QD
     Route: 048
     Dates: start: 20130402, end: 20130409
  53. BENZALIN [Suspect]
     Active Substance: NITRAZEPAM
     Dosage: 5 MG, QD
     Route: 048
     Dates: start: 20130518, end: 20130519
  54. BENZALIN [Suspect]
     Active Substance: NITRAZEPAM
     Dosage: 5 MG,QD
     Route: 048
     Dates: start: 20140210, end: 20140210
  55. WYPAX [Concomitant]
     Active Substance: LORAZEPAM
     Dosage: 1 MG, UNK
     Route: 048
  56. CLOZARIL [Suspect]
     Active Substance: CLOZAPINE
     Dosage: 100 MG, QD
     Route: 048
     Dates: start: 20130322, end: 20130323
  57. CLOZARIL [Suspect]
     Active Substance: CLOZAPINE
     Dosage: 400 MG, QD
     Route: 048
     Dates: start: 20130605, end: 20130611
  58. CLOZARIL [Suspect]
     Active Substance: CLOZAPINE
     Dosage: 450 MG, QD
     Route: 048
     Dates: start: 20130612, end: 20130625
  59. CLOZARIL [Suspect]
     Active Substance: CLOZAPINE
     Dosage: 350 MG, QD
     Route: 048
     Dates: start: 20131113, end: 20140121
  60. CLOZARIL [Suspect]
     Active Substance: CLOZAPINE
     Dosage: 400 MG, QD
     Route: 048
     Dates: start: 20140122, end: 20140128
  61. BENZALIN [Suspect]
     Active Substance: NITRAZEPAM
     Dosage: 5 MG, QD
     Route: 048
     Dates: start: 20130510, end: 20130511
  62. BENZALIN [Suspect]
     Active Substance: NITRAZEPAM
     Dosage: 5 MG, QD
     Route: 048
     Dates: start: 20130729, end: 20130916
  63. BENZALIN [Suspect]
     Active Substance: NITRAZEPAM
     Dosage: 5 MG, QD
     Route: 048
     Dates: start: 20131104, end: 20131105
  64. BENZALIN [Suspect]
     Active Substance: NITRAZEPAM
     Dosage: 5 MG, QD
     Route: 048
     Dates: start: 20140214, end: 20140214
  65. WYPAX [Concomitant]
     Active Substance: LORAZEPAM
     Dosage: 1 MG, UNK
     Route: 048
  66. RESTAMIN CORTISONE [Concomitant]
     Indication: ECZEMA
     Route: 065
     Dates: start: 20130703, end: 20130905
  67. CLOZARIL [Suspect]
     Active Substance: CLOZAPINE
     Dosage: 350 MG, QD
     Route: 048
     Dates: start: 20130531, end: 20130604
  68. CLOZARIL [Suspect]
     Active Substance: CLOZAPINE
     Dosage: 500 MG, QD
     Route: 048
     Dates: start: 20130626, end: 20130702
  69. CLOZARIL [Suspect]
     Active Substance: CLOZAPINE
     Dosage: 450 MG, QD
     Route: 048
     Dates: start: 20140129, end: 20140211
  70. CLOZARIL [Suspect]
     Active Substance: CLOZAPINE
     Dosage: 550 MG, QD
     Route: 048
     Dates: start: 20140226, end: 20140304
  71. BENZALIN [Suspect]
     Active Substance: NITRAZEPAM
     Dosage: 5 MG, QD
     Route: 048
     Dates: start: 20130331, end: 20130331
  72. BENZALIN [Suspect]
     Active Substance: NITRAZEPAM
     Dosage: 5 MG, QD
     Route: 048
     Dates: start: 20130418, end: 20130421
  73. BENZALIN [Suspect]
     Active Substance: NITRAZEPAM
     Dosage: 5 MG, QD
     Route: 048
     Dates: start: 20130525, end: 20130525
  74. BENZALIN [Suspect]
     Active Substance: NITRAZEPAM
     Dosage: 5 MG, QD
     Route: 048
     Dates: start: 20130612, end: 20130613
  75. BENZALIN [Suspect]
     Active Substance: NITRAZEPAM
     Dosage: 10 MG, QD
     Route: 048
     Dates: start: 20130614, end: 20130614
  76. BENZALIN [Suspect]
     Active Substance: NITRAZEPAM
     Dosage: 5 MG, QD
     Route: 048
     Dates: start: 20131230, end: 20131230
  77. BENZALIN [Suspect]
     Active Substance: NITRAZEPAM
     Dosage: 5 MG, QD
     Route: 048
     Dates: start: 20140102, end: 20140102
  78. SENNOSIDE [Concomitant]
     Active Substance: SENNOSIDES
     Indication: CONSTIPATION
     Dosage: 12 MG, UNK
     Route: 048
     Dates: start: 20130617
  79. WYPAX [Concomitant]
     Active Substance: LORAZEPAM
     Dosage: 1 MG, UNK
     Route: 048
  80. WYPAX [Concomitant]
     Active Substance: LORAZEPAM
     Dosage: 1 MG, UNK
     Route: 048
  81. WYPAX [Concomitant]
     Active Substance: LORAZEPAM
     Dosage: 1 MG, UNK
     Route: 048
  82. GLYCERIN. [Concomitant]
     Active Substance: GLYCERIN
     Indication: PRODUCT USED FOR UNKNOWN INDICATION
     Dosage: 120 ML, UNK
     Route: 065
     Dates: start: 20130709, end: 20130709
  83. CLOZARIL [Suspect]
     Active Substance: CLOZAPINE
     Dosage: 300 MG, QD
     Route: 048
     Dates: start: 20131020, end: 20131112
  84. BENZALIN [Suspect]
     Active Substance: NITRAZEPAM
     Dosage: 5 MG, QD
     Route: 048
     Dates: start: 20130705, end: 20130705
  85. WYPAX [Concomitant]
     Active Substance: LORAZEPAM
     Indication: SCHIZOPHRENIA, DISORGANISED TYPE
     Dosage: 1 MG, UNK
     Route: 048
     Dates: start: 20130705
  86. WYPAX [Concomitant]
     Active Substance: LORAZEPAM
     Dosage: 1 MG, UNK
     Route: 048
  87. WYPAX [Concomitant]
     Active Substance: LORAZEPAM
     Dosage: 1 MG, UNK
     Route: 048
  88. WYPAX [Concomitant]
     Active Substance: LORAZEPAM
     Dosage: 1 MG, UNK
     Route: 048
  89. WYPAX [Concomitant]
     Active Substance: LORAZEPAM
     Dosage: 1 MG, UNK
     Route: 048
  90. WYPAX [Concomitant]
     Active Substance: LORAZEPAM
     Dosage: 1 MG, UNK
     Route: 048
     Dates: end: 20140309

REACTIONS (7)
  - Feeling hot [Unknown]
  - C-reactive protein increased [Unknown]
  - White blood cell count increased [Unknown]
  - Weight decreased [Recovering/Resolving]
  - Blood creatine phosphokinase increased [Recovered/Resolved]
  - Tachycardia [Recovered/Resolved]
  - Blood pressure abnormal [Unknown]

NARRATIVE: CASE EVENT DATE: 201310
